FAERS Safety Report 6534517-0 (Version None)
Quarter: 2010Q1

REPORT INFORMATION
  Report Type: 
  Country: None (occurrence: None)
  Receive Date: 20100112
  Receipt Date: 20100107
  Transmission Date: 20100710
  Serious: Yes (Life-Threatening, Hospitalization, Disabling, Other)
  Sender: FDA-Public Use
  Company Number: DK-PFIZER INC-2008044039

PATIENT
  Age: 45 Year
  Sex: Female
  Weight: 81 kg

DRUGS (10)
  1. SOLU-MEDROL [Suspect]
     Indication: CHRONIC OBSTRUCTIVE PULMONARY DISEASE
     Dosage: ONCE
     Route: 042
     Dates: start: 20080430, end: 20080430
  2. CHAMPIX [Concomitant]
     Dosage: UNK
     Route: 048
  3. PONDOCILLIN [Concomitant]
     Route: 048
  4. BRICANYL [Concomitant]
     Dosage: 0.5 UNK, 4X/DAY
     Route: 055
  5. COMBIVENT [Concomitant]
     Dosage: UNK
     Dates: start: 20080430
  6. NOSKAPIN [Concomitant]
     Dosage: 25 MG, 3X/DAY
     Route: 048
  7. DALTEPARIN SODIUM [Concomitant]
     Dosage: 5000 IU, UNK
     Route: 058
     Dates: start: 20080430
  8. DALTEPARIN SODIUM [Concomitant]
     Dosage: 5000 IU, UNK
     Route: 058
     Dates: start: 20090430
  9. VENTOLIN [Concomitant]
     Dosage: 0.1 MG, 4X/DAY
  10. MANDOLGIN [Concomitant]
     Dosage: 50 MG, UNK

REACTIONS (3)
  - CARDIAC ARREST [None]
  - CEREBRAL INFARCTION [None]
  - CEREBRAL THROMBOSIS [None]
